FAERS Safety Report 4344835-2 (Version None)
Quarter: 2004Q2

REPORT INFORMATION
  Report Type: 
  Country: None (occurrence: None)
  Receive Date: 20040420
  Receipt Date: 20040408
  Transmission Date: 20050107
  Serious: Yes (Other)
  Sender: FDA-Public Use
  Company Number: HQWYE804203FEB04

PATIENT
  Age: 16 Year
  Sex: Male

DRUGS (8)
  1. EFFEXOR [Suspect]
     Indication: DEPRESSION
     Dosage: SEE IMAGE
     Route: 048
     Dates: end: 20010101
  2. EFFEXOR [Suspect]
     Indication: SOCIAL PHOBIA
     Dosage: SEE IMAGE
     Route: 048
     Dates: end: 20010101
  3. EFFEXOR [Suspect]
     Indication: DEPRESSION
     Dosage: SEE IMAGE
     Route: 048
     Dates: start: 20010101
  4. EFFEXOR [Suspect]
     Indication: SOCIAL PHOBIA
     Dosage: SEE IMAGE
     Route: 048
     Dates: start: 20010101
  5. PAXIL [Suspect]
     Indication: DEPRESSION
     Dosage: SEE IMAGE
     Dates: end: 20010101
  6. PAXIL [Suspect]
     Indication: SOCIAL PHOBIA
     Dosage: SEE IMAGE
     Dates: end: 20010101
  7. PAXIL [Suspect]
     Indication: DEPRESSION
     Dosage: SEE IMAGE
  8. PAXIL [Suspect]
     Indication: SOCIAL PHOBIA
     Dosage: SEE IMAGE

REACTIONS (7)
  - AGGRESSION [None]
  - AMNESIA [None]
  - DEPRESSION [None]
  - FEELING ABNORMAL [None]
  - HOMICIDAL IDEATION [None]
  - SOMNOLENCE [None]
  - SUICIDAL IDEATION [None]
